FAERS Safety Report 15332108 (Version 1)
Quarter: 2018Q4

REPORT INFORMATION
  Report Type: Spontaneous
  Country: ES (occurrence: ES)
  Receive Date: 20180829
  Receipt Date: 20180829
  Transmission Date: 20190204
  Serious: Yes (Hospitalization)
  Sender: FDA-Public Use
  Company Number: PHHY2018ES081153

PATIENT
  Age: 39 Year
  Sex: Male

DRUGS (4)
  1. AMOXICILLIN SANDOZ [Suspect]
     Active Substance: AMOXICILLIN
     Indication: RESPIRATORY TRACT INFECTION
     Dosage: UNK
     Route: 048
  2. ALPRAZOLAM. [Suspect]
     Active Substance: ALPRAZOLAM
     Indication: PRODUCT USED FOR UNKNOWN INDICATION
     Dosage: UNK
     Route: 048
  3. ZAMENE [Suspect]
     Active Substance: DEFLAZACORT
     Indication: FACIAL PARALYSIS
     Dosage: UNK (DESCONOCIDA)
     Route: 048
     Dates: start: 20071128, end: 20071228
  4. ACETILCISTEINA RATIOPHARM 200 MG POLVO PARA SOLUCION ORAL EFG , 30 SOB [Suspect]
     Active Substance: ACETYLCYSTEINE
     Indication: RESPIRATORY TRACT INFECTION
     Dosage: UNK
     Route: 048

REACTIONS (1)
  - Toxic epidermal necrolysis [Recovered/Resolved]

NARRATIVE: CASE EVENT DATE: 20071228
